FAERS Safety Report 4350206-5 (Version None)
Quarter: 2004Q1

REPORT INFORMATION
  Report Type: 
  Country: None (occurrence: None)
  Receive Date: 20040329
  Receipt Date: 20040126
  Transmission Date: 20041129
  Serious: No
  Sender: FDA-Public Use
  Company Number: USA040157622

PATIENT
  Age: 13 Year
  Sex: Male
  Weight: 45 kg

DRUGS (5)
  1. STRATTERA [Suspect]
     Indication: ATTENTION DEFICIT/HYPERACTIVITY DISORDER
     Dosage: 60 MG DAY
     Dates: start: 20031212
  2. MULTI-VITAMINS [Concomitant]
  3. CALCIUM [Concomitant]
  4. AMINO ACIDS [Concomitant]
  5. VITAMIN B COMPLEX CAP [Concomitant]

REACTIONS (4)
  - ANGINA PECTORIS [None]
  - DECREASED APPETITE [None]
  - PRESCRIBED OVERDOSE [None]
  - WEIGHT DECREASED [None]
